FAERS Safety Report 24128282 (Version 1)
Quarter: 2024Q3

REPORT INFORMATION
  Report Type: Spontaneous
  Country: PL (occurrence: PL)
  Receive Date: 20240723
  Receipt Date: 20240723
  Transmission Date: 20241016
  Serious: Yes (Other)
  Sender: AMGEN
  Company Number: PL-AMGEN-POLSP2024140753

PATIENT
  Age: 63 Year
  Sex: Female

DRUGS (7)
  1. VECTIBIX [Suspect]
     Active Substance: PANITUMUMAB
     Indication: Colon cancer metastatic
     Dosage: UNK
     Route: 065
     Dates: start: 20211213, end: 20220818
  2. VECTIBIX [Suspect]
     Active Substance: PANITUMUMAB
     Dosage: UNK
     Route: 065
     Dates: start: 20220830, end: 2024
  3. LEUCOVORIN CALCIUM [Concomitant]
     Active Substance: LEUCOVORIN CALCIUM
     Dosage: UNK
     Route: 065
  4. FLUOROURACIL [Concomitant]
     Active Substance: FLUOROURACIL
     Dosage: UNK
     Route: 065
  5. IRINOTECAN [Concomitant]
     Active Substance: IRINOTECAN
     Dosage: UNK
     Route: 065
  6. TERTENSIF COMBI [Concomitant]
     Dosage: UNK  1X 1TABLET
     Route: 065
  7. METOPROLOL [Concomitant]
     Active Substance: METOPROLOL
     Dosage: 50 MILLIGRAM 1X 1TABLET
     Route: 065

REACTIONS (12)
  - Leukopenia [Unknown]
  - Neutropenia [Unknown]
  - Erythema [Unknown]
  - Dermatitis acneiform [Unknown]
  - Dry skin [Unknown]
  - Skin exfoliation [Unknown]
  - Pruritus [Unknown]
  - Hypomagnesaemia [Unknown]
  - Conjunctivitis [Unknown]
  - Eyelash changes [Unknown]
  - Fatigue [Unknown]
  - Therapy partial responder [Unknown]
